FAERS Safety Report 12972735 (Version 2)
Quarter: 2016Q4

REPORT INFORMATION
  Report Type: Spontaneous
  Country: TN (occurrence: TN)
  Receive Date: 20161124
  Receipt Date: 20161223
  Transmission Date: 20170207
  Serious: Yes (Hospitalization, Other)
  Sender: FDA-Public Use
  Company Number: TN-AMGEN-TUNSP2016165439

PATIENT
  Sex: Female

DRUGS (1)
  1. ENBREL [Suspect]
     Active Substance: ETANERCEPT
     Indication: PRODUCT USED FOR UNKNOWN INDICATION
     Dosage: 50 MG, WEEKLY
     Route: 058

REACTIONS (5)
  - Red blood cell sedimentation rate increased [Unknown]
  - Lung infection [Recovered/Resolved]
  - Lung disorder [Unknown]
  - Mydriasis [Unknown]
  - C-reactive protein increased [Unknown]
